FAERS Safety Report 7368434-3 (Version None)
Quarter: 2011Q1

REPORT INFORMATION
  Report Type: 
  Country: None (occurrence: None)
  Receive Date: 20110311
  Receipt Date: 20110228
  Transmission Date: 20110831
  Serious: Yes (Death, Other)
  Sender: FDA-Public Use
  Company Number: 028346

PATIENT

DRUGS (1)
  1. KEPPRA [Suspect]

REACTIONS (2)
  - RENAL FAILURE [None]
  - HEPATIC FAILURE [None]
